FAERS Safety Report 4913738-4 (Version None)
Quarter: 2006Q1

REPORT INFORMATION
  Report Type: 
  Country: None (occurrence: None)
  Receive Date: 20060210
  Receipt Date: 20060208
  Transmission Date: 20060701
  Serious: Yes (Death, Hospitalization)
  Sender: FDA-Public Use
  Company Number: 2005BI021102

PATIENT
  Age: 52 Year
  Sex: Male

DRUGS (2)
  1. AVONEX [Suspect]
     Indication: MULTIPLE SCLEROSIS
     Dosage: 30 UG; QW; IM
     Route: 030
     Dates: start: 20050216, end: 20050501
  2. OXYCONTIN [Concomitant]

REACTIONS (3)
  - CEREBRAL ISCHAEMIA [None]
  - MULTIPLE DRUG OVERDOSE ACCIDENTAL [None]
  - RESPIRATORY FAILURE [None]
